FAERS Safety Report 4546707-7 (Version None)
Quarter: 2005Q1

REPORT INFORMATION
  Report Type: 
  Country: None (occurrence: None)
  Receive Date: 20050105
  Receipt Date: 20041223
  Transmission Date: 20050727
  Serious: Yes (Hospitalization)
  Sender: FDA-Public Use
  Company Number: EM2004-0663

PATIENT
  Sex: 0

DRUGS (7)
  1. PROLEUKIN [Suspect]
     Indication: RENAL CELL CARCINOMA STAGE UNSPECIFIED
  2. INTERFERON ALFA (INTERFERON ALFA) [Suspect]
     Indication: RENAL CELL CARCINOMA STAGE UNSPECIFIED
  3. FLUOROURACIL [Suspect]
     Indication: RENAL CELL CARCINOMA STAGE UNSPECIFIED
  4. LANSOPRAZOLE [Concomitant]
  5. NIFEDIPINE (NIFEDIPINE) [Concomitant]
  6. PROCHLORPERAZINE [Concomitant]
  7. BISOPROLOL (BISPROLOL) [Concomitant]

REACTIONS (7)
  - ABDOMINAL PAIN [None]
  - ANOREXIA [None]
  - DEHYDRATION [None]
  - DIARRHOEA [None]
  - MOUTH ULCERATION [None]
  - PHARYNGITIS [None]
  - RECTAL HAEMORRHAGE [None]
